FAERS Safety Report 24286480 (Version 1)
Quarter: 2024Q3

REPORT INFORMATION
  Report Type: Spontaneous
  Country: US (occurrence: None)
  Receive Date: 20240903
  Receipt Date: 20240903
  Transmission Date: 20241017
  Serious: No
  Sender: Public
  Company Number: None

PATIENT
  Sex: Female

DRUGS (1)
  1. EPCLUSA [Suspect]
     Active Substance: SOFOSBUVIR\VELPATASVIR
     Indication: Hepatitis C
     Dosage: OTHER QUANTITY : 400MG/100MG;?FREQUENCY : DAILY;?
     Route: 048
     Dates: start: 202408

REACTIONS (4)
  - Fatigue [None]
  - Anxiety [None]
  - Muscle spasms [None]
  - Pain [None]
